FAERS Safety Report 6333404-0 (Version None)
Quarter: 2009Q3

REPORT INFORMATION
  Report Type: 
  Country: None (occurrence: None)
  Receive Date: 20090828
  Receipt Date: 20070724
  Transmission Date: 20100115
  Serious: Yes (Hospitalization, Other)
  Sender: FDA-Public Use
  Company Number: US-AMGEN-KDL213475

PATIENT
  Sex: Female
  Weight: 57.7 kg

DRUGS (10)
  1. PROCRIT [Suspect]
     Indication: RENAL FAILURE CHRONIC
     Route: 058
     Dates: start: 20061201
  2. FEOSOL [Concomitant]
  3. DIOVAN [Concomitant]
     Dates: end: 20070312
  4. NASONEX [Concomitant]
  5. SYNTHROID [Concomitant]
  6. COREG [Concomitant]
  7. NORVASC [Concomitant]
  8. PREVACID [Concomitant]
  9. PRILOSEC [Concomitant]
  10. ASPIRIN [Concomitant]

REACTIONS (17)
  - ANAEMIA [None]
  - AZOTAEMIA [None]
  - CARDIAC FAILURE CONGESTIVE [None]
  - CARDIOMYOPATHY [None]
  - CERUMEN IMPACTION [None]
  - COLONIC POLYP [None]
  - CORONARY ARTERY DISEASE [None]
  - DEEP VEIN THROMBOSIS [None]
  - DEHYDRATION [None]
  - DIVERTICULUM [None]
  - DYSPHAGIA [None]
  - EPISTAXIS [None]
  - GASTROINTESTINAL HAEMORRHAGE [None]
  - OTITIS MEDIA [None]
  - PARAESTHESIA [None]
  - RHINITIS ALLERGIC [None]
  - UPPER RESPIRATORY TRACT INFECTION [None]
